FAERS Safety Report 18251310 (Version 2)
Quarter: 2021Q2

REPORT INFORMATION
  Report Type: Other
  Country: BG (occurrence: BG)
  Receive Date: 20200910
  Receipt Date: 20210630
  Transmission Date: 20210717
  Serious: No
  Sender: FDA-Public Use
  Company Number: BG-ROCHE-2674512

PATIENT
  Age: 42 Year
  Sex: Male
  Weight: 87 kg

DRUGS (8)
  1. PARACETAMOL [Concomitant]
     Active Substance: ACETAMINOPHEN
     Route: 048
     Dates: start: 20201104, end: 20201104
  2. OCRELIZUMAB. [Suspect]
     Active Substance: OCRELIZUMAB
     Indication: MULTIPLE SCLEROSIS
     Dosage: AT 12.20
     Route: 042
     Dates: start: 20200302, end: 20200302
  3. METHYLPREDNISOLON [Concomitant]
     Active Substance: METHYLPREDNISOLONE
     Indication: PREMEDICATION
     Route: 042
     Dates: start: 20200302, end: 20200302
  4. METHYLPREDNISOLON [Concomitant]
     Active Substance: METHYLPREDNISOLONE
     Route: 042
     Dates: start: 20201104, end: 20201104
  5. CALMABEN [Concomitant]
     Route: 048
     Dates: start: 20201104, end: 20201104
  6. PARACETAMOL [Concomitant]
     Active Substance: ACETAMINOPHEN
     Indication: PREMEDICATION
     Route: 048
     Dates: start: 20200302, end: 20200302
  7. OCRELIZUMAB. [Suspect]
     Active Substance: OCRELIZUMAB
     Route: 042
  8. CALMABEN [Concomitant]
     Indication: PREMEDICATION
     Route: 048
     Dates: start: 20200302, end: 20200302

REACTIONS (1)
  - Mycobacterium tuberculosis complex test positive [Not Recovered/Not Resolved]

NARRATIVE: CASE EVENT DATE: 20200730
